FAERS Safety Report 20305832 (Version 1)
Quarter: 2022Q1

REPORT INFORMATION
  Report Type: Spontaneous
  Country: US (occurrence: US)
  Receive Date: 20220106
  Receipt Date: 20220106
  Transmission Date: 20220423
  Serious: No
  Sender: FDA-Public Use
  Company Number: US-SUNOVION-2022SUN000014

PATIENT
  Sex: Female

DRUGS (1)
  1. XOPENEX [Suspect]
     Active Substance: LEVALBUTEROL HYDROCHLORIDE
     Indication: Asthma
     Dosage: 25 ?G, QID( FOUR TIMES DAILY AND TWO EXTRAS IF NEEDED)
     Route: 055

REACTIONS (4)
  - Asthma [Not Recovered/Not Resolved]
  - Device failure [Not Recovered/Not Resolved]
  - Device delivery system issue [Not Recovered/Not Resolved]
  - Device issue [Not Recovered/Not Resolved]
